FAERS Safety Report 9516639 (Version 2)
Quarter: 2014Q1

REPORT INFORMATION
  Report Type: Spontaneous
  Country: US (occurrence: None)
  Receive Date: 20130305
  Receipt Date: 20140306
  Transmission Date: 20141002
  Serious: Yes (Hospitalization, Other)
  Sender: FDA-Public Use
  Company Number: 163-21880-12011372

PATIENT
  Age: 64 Year
  Sex: Male

DRUGS (5)
  1. REVLIMID (LENALIDOMIDE) (25 MILLIGRAM, CAPSULES) [Suspect]
     Indication: PLASMA CELL MYELOMA
     Dosage: 25 MG, 14 IN 14 D, PO
     Route: 048
     Dates: start: 20110728
  2. BENADRYL ALLERGY CHILDRENS(DIPHENHYDRAMINE [Concomitant]
  3. FLAGYL(METRONIDAZOLE)(UNKNOWN) [Concomitant]
  4. PRILOSEC [Suspect]
  5. OMNICAP (FOLIC ACID W/MINERALS NOS/VITAMINS NOS) [Concomitant]

REACTIONS (2)
  - Pneumonia [None]
  - Pneumonia [None]
